FAERS Safety Report 8434734-9 (Version None)
Quarter: 2012Q2

REPORT INFORMATION
  Report Type: 
  Country: None (occurrence: None)
  Receive Date: 20120614
  Receipt Date: 20120608
  Transmission Date: 20120825
  Serious: Yes (Other)
  Sender: FDA-Public Use
  Company Number: US-ELI_LILLY_AND_COMPANY-US201206003072

PATIENT
  Age: 64 Year
  Sex: Male

DRUGS (6)
  1. EFFIENT [Suspect]
     Indication: STENT PLACEMENT
     Dosage: 60 MG, LOADING DOSE
     Route: 048
     Dates: start: 20120602, end: 20120602
  2. COUMADIN [Concomitant]
     Dosage: 5 MG, UNK
  3. ASPIRIN [Concomitant]
     Dosage: 325 MG, QD
  4. LOVENOX [Concomitant]
     Dosage: 100 MG, UNKNOWN
  5. EFFIENT [Suspect]
     Dosage: 10 MG, QD
     Route: 048
     Dates: start: 20120603, end: 20120606
  6. ANGIOMAX [Concomitant]

REACTIONS (2)
  - CEREBRAL HAEMATOMA [None]
  - INTRACARDIAC THROMBUS [None]
